FAERS Safety Report 6423331-2 (Version None)
Quarter: 2009Q4

REPORT INFORMATION
  Report Type: 
  Country: None (occurrence: None)
  Receive Date: 20091102
  Receipt Date: 20091020
  Transmission Date: 20100525
  Serious: Yes (Other)
  Sender: FDA-Public Use
  Company Number: FR-ELI_LILLY_AND_COMPANY-FR200910005409

PATIENT
  Age: 14 Year
  Sex: Female

DRUGS (1)
  1. UMATROPE [Suspect]
     Indication: GROWTH HORMONE DEFICIENCY
     Dosage: 0.25 MG/KG, WEEKLY (1/W)
     Route: 058
     Dates: start: 20090701

REACTIONS (1)
  - EPIPHYSIOLYSIS [None]
